FAERS Safety Report 8911386 (Version 2)
Quarter: 2012Q4

REPORT INFORMATION
  Report Type: 
  Country: US (occurrence: US)
  Receive Date: 20121116
  Receipt Date: 20121205
  Transmission Date: 20130627
  Serious: Yes (Other)
  Sender: FDA-Public Use
  Company Number: US-SANOFI-AVENTIS-2012SA082851

PATIENT
  Age: 65 Year
  Sex: Female
  Weight: 110.45 kg

DRUGS (8)
  1. LANTUS SOLOSTAR [Suspect]
     Indication: TYPE 2 DIABETES MELLITUS
     Route: 058
  2. SOLOSTAR [Suspect]
     Indication: TYPE 2 DIABETES MELLITUS
  3. PREDNISONE [Concomitant]
  4. METFORMIN [Concomitant]
     Indication: DIABETES
  5. DIOVANE [Concomitant]
     Indication: BLOOD PRESSURE HIGH
  6. OMEPRAZOLE [Concomitant]
     Indication: GASTROOESOPHAGEAL REFLUX
  7. AMLODIPINE [Concomitant]
     Indication: BLOOD PRESSURE HIGH
  8. ASPIRIN [Concomitant]
     Indication: THROMBOSIS PROPHYLAXIS

REACTIONS (1)
  - Eye operation [Unknown]
